FAERS Safety Report 8905498 (Version 2)
Quarter: 2012Q4

REPORT INFORMATION
  Report Type: 
  Country: JP (occurrence: JP)
  Receive Date: 20121113
  Receipt Date: 20121116
  Transmission Date: 20130627
  Serious: Yes (Other)
  Sender: FDA-Public Use
  Company Number: JP-ABBOTT-12P-087-1007757-00

PATIENT
  Age: 72 Year
  Sex: Male

DRUGS (2)
  1. LEUPLIN FOR INJECTION KIT 3.75 [Suspect]
     Indication: PROSTATE CANCER
     Route: 058
     Dates: start: 20121108
  2. FLIVAS [Concomitant]
     Indication: BENIGN PROSTATIC HYPERPLASIA
     Route: 048
     Dates: start: 20110917

REACTIONS (2)
  - Anaphylactic shock [Recovered/Resolved]
  - Headache [Unknown]
